FAERS Safety Report 18409101 (Version 1)
Quarter: 2020Q4

REPORT INFORMATION
  Report Type: Spontaneous
  Country: US (occurrence: US)
  Receive Date: 20201021
  Receipt Date: 20201021
  Transmission Date: 20210114
  Serious: Yes (Hospitalization)
  Sender: FDA-Public Use
  Company Number: US-ELI_LILLY_AND_COMPANY-US202010005465

PATIENT
  Sex: Female

DRUGS (3)
  1. TRULICITY [Suspect]
     Active Substance: DULAGLUTIDE
     Indication: TYPE 2 DIABETES MELLITUS
     Dosage: 1.5 MG, UNKNOWN
     Route: 058
     Dates: start: 2018
  2. TRULICITY [Suspect]
     Active Substance: DULAGLUTIDE
     Dosage: 1.5 MG, UNKNOWN
     Route: 058
  3. JANUMET [Concomitant]
     Active Substance: METFORMIN HYDROCHLORIDE\SITAGLIPTIN PHOSPHATE
     Indication: TYPE 2 DIABETES MELLITUS
     Dosage: UNK, UNKNOWN
     Route: 065

REACTIONS (13)
  - Fall [Recovered/Resolved]
  - Glycosylated haemoglobin increased [Unknown]
  - Hand fracture [Recovered/Resolved]
  - Papule [Not Recovered/Not Resolved]
  - Depressed mood [Unknown]
  - Cerebral haemorrhage [Recovered/Resolved]
  - Facial bones fracture [Recovered/Resolved]
  - Hypercholesterolaemia [Unknown]
  - Injection site pain [Recovered/Resolved]
  - Blood pressure abnormal [Unknown]
  - Atrial fibrillation [Unknown]
  - Injection site bruising [Recovered/Resolved]
  - Rash [Not Recovered/Not Resolved]

NARRATIVE: CASE EVENT DATE: 2018
